FAERS Safety Report 18094836 (Version 1)
Quarter: 2020Q3

REPORT INFORMATION
  Report Type: Spontaneous
  Country: SA (occurrence: SA)
  Receive Date: 20200731
  Receipt Date: 20200731
  Transmission Date: 20201103
  Serious: Yes (Other)
  Sender: FDA-Public Use
  Company Number: SA-JNJFOC-20200736333

PATIENT

DRUGS (18)
  1. PARACETAMOL [Suspect]
     Active Substance: ACETAMINOPHEN
     Indication: PYREXIA
     Route: 048
  2. PARACETAMOL [Suspect]
     Active Substance: ACETAMINOPHEN
     Indication: CONTUSION
  3. IBUPROFEN. [Suspect]
     Active Substance: IBUPROFEN
     Indication: TONSILLITIS
  4. IBUPROFEN. [Suspect]
     Active Substance: IBUPROFEN
     Indication: CONTUSION
  5. PARACETAMOL [Suspect]
     Active Substance: ACETAMINOPHEN
     Indication: TOOTHACHE
  6. PARACETAMOL [Suspect]
     Active Substance: ACETAMINOPHEN
     Indication: THERMAL BURN
  7. IBUPROFEN. [Suspect]
     Active Substance: IBUPROFEN
     Indication: RASH
  8. IBUPROFEN. [Suspect]
     Active Substance: IBUPROFEN
     Indication: EAR PAIN
  9. PARACETAMOL [Suspect]
     Active Substance: ACETAMINOPHEN
     Indication: TONSILLITIS
  10. PARACETAMOL [Suspect]
     Active Substance: ACETAMINOPHEN
     Indication: LARYNGITIS
  11. PARACETAMOL [Suspect]
     Active Substance: ACETAMINOPHEN
     Indication: INJURY
  12. IBUPROFEN. [Suspect]
     Active Substance: IBUPROFEN
     Indication: INJURY
  13. PARACETAMOL [Suspect]
     Active Substance: ACETAMINOPHEN
     Indication: RASH
  14. IBUPROFEN. [Suspect]
     Active Substance: IBUPROFEN
     Indication: LARYNGITIS
  15. PARACETAMOL [Suspect]
     Active Substance: ACETAMINOPHEN
     Indication: EAR PAIN
  16. IBUPROFEN. [Suspect]
     Active Substance: IBUPROFEN
     Indication: PYREXIA
     Route: 048
  17. IBUPROFEN. [Suspect]
     Active Substance: IBUPROFEN
     Indication: TOOTHACHE
  18. IBUPROFEN. [Suspect]
     Active Substance: IBUPROFEN
     Indication: THERMAL BURN

REACTIONS (12)
  - Anaemia [Unknown]
  - Dissociation [Unknown]
  - Rectal haemorrhage [Unknown]
  - Abdominal pain [Unknown]
  - Weight decreased [Unknown]
  - Decreased appetite [Unknown]
  - Diarrhoea [Unknown]
  - Haematochezia [Unknown]
  - Abdominal pain upper [Unknown]
  - Anxiety [Unknown]
  - Rash [Unknown]
  - Fatigue [Unknown]
